FAERS Safety Report 6763519-4 (Version None)
Quarter: 2010Q2

REPORT INFORMATION
  Report Type: 
  Country: None (occurrence: None)
  Receive Date: 20100610
  Receipt Date: 20100527
  Transmission Date: 20101027
  Serious: Yes (Other)
  Sender: FDA-Public Use
  Company Number: PHHY2010CA33896

PATIENT

DRUGS (8)
  1. ALISKIREN ALI+ [Suspect]
     Indication: HYPERTENSION
     Dosage: 300 MG EVERY DAY
     Route: 048
     Dates: start: 20090521, end: 20090527
  2. ALISKIREN ALI+ [Suspect]
     Indication: URINE ALBUMIN/CREATININE RATIO INCREASED
  3. BETA BLOCKING AGENTS [Concomitant]
  4. DIURETICS [Concomitant]
  5. ANGIOTENSIN II ANTAGONISTS [Concomitant]
  6. ATACAND [Concomitant]
     Dosage: 80 MG, BID
  7. ATACAND HCT [Concomitant]
     Dosage: 12.5 MG, BID
  8. NORVASC [Concomitant]
     Dosage: 10 MG (AS NECESSARY)

REACTIONS (2)
  - BLOOD CREATININE INCREASED [None]
  - URINE ALBUMIN/CREATININE RATIO INCREASED [None]
